FAERS Safety Report 24531819 (Version 1)
Quarter: 2024Q4

REPORT INFORMATION
  Report Type: Spontaneous
  Country: IT (occurrence: IT)
  Receive Date: 20241022
  Receipt Date: 20241022
  Transmission Date: 20250115
  Serious: Yes (Other)
  Sender: CHEPLAPHARM
  Company Number: IT-CHEPLA-2024013307

PATIENT
  Age: 71 Year
  Sex: Male

DRUGS (9)
  1. CAPECITABINE [Suspect]
     Active Substance: CAPECITABINE
     Indication: Colorectal cancer
     Dates: start: 202006
  2. CAPECITABINE [Suspect]
     Active Substance: CAPECITABINE
     Indication: Colorectal cancer
     Dosage: SIX CYCLES
     Dates: end: 202105
  3. TRETINOIN [Suspect]
     Active Substance: TRETINOIN
     Indication: Acute promyelocytic leukaemia
  4. OXALIPLATIN [Suspect]
     Active Substance: OXALIPLATIN
     Indication: Colorectal cancer
     Dosage: SIX CYCLES
     Dates: end: 202105
  5. IDARUBICIN [Suspect]
     Active Substance: IDARUBICIN
     Indication: Acute promyelocytic leukaemia
  6. METHYLPREDNISOLONE [Concomitant]
     Active Substance: METHYLPREDNISOLONE
     Indication: Prophylaxis
  7. FUROSEMIDE [Concomitant]
     Active Substance: FUROSEMIDE
     Indication: Prophylaxis
  8. POSACONAZOLE [Concomitant]
     Active Substance: POSACONAZOLE
     Indication: Prophylaxis
  9. LEVOFLOXACIN [Concomitant]
     Active Substance: LEVOFLOXACIN
     Indication: Prophylaxis

REACTIONS (5)
  - Cardiac failure acute [Recovering/Resolving]
  - Sepsis [Recovered/Resolved]
  - Acute promyelocytic leukaemia [Recovered/Resolved]
  - Staphylococcal infection [Recovered/Resolved]
  - Bacterial infection [Recovered/Resolved]

NARRATIVE: CASE EVENT DATE: 20230101
